FAERS Safety Report 9628960 (Version 1)
Quarter: 2013Q4

REPORT INFORMATION
  Report Type: Spontaneous
  Country: US (occurrence: US)
  Receive Date: 20131017
  Receipt Date: 20131017
  Transmission Date: 20140711
  Serious: No
  Sender: FDA-Public Use
  Company Number: US-BAXTER-2013BAX039645

PATIENT
  Sex: Female

DRUGS (3)
  1. GAMMAGARD LIQUID [Suspect]
     Indication: IMMUNODEFICIENCY COMMON VARIABLE
     Route: 065
     Dates: start: 20131007, end: 20131007
  2. ACETAMINOPHEN [Concomitant]
     Indication: PREMEDICATION
  3. DIPHENHYDRAMINE [Concomitant]
     Indication: PREMEDICATION

REACTIONS (1)
  - Headache [Unknown]
